FAERS Safety Report 17147265 (Version 6)
Quarter: 2021Q3

REPORT INFORMATION
  Report Type: Spontaneous
  Country: FR (occurrence: FR)
  Receive Date: 20191212
  Receipt Date: 20210923
  Transmission Date: 20211014
  Serious: Yes (Hospitalization, Disabling, Other)
  Sender: FDA-Public Use
  Company Number: FR-GLAXOSMITHKLINE-FR2019EME217575

PATIENT
  Age: 62 Year
  Sex: Male
  Weight: 110 kg

DRUGS (14)
  1. LITHIUM. [Suspect]
     Active Substance: LITHIUM
     Indication: PRODUCT USED FOR UNKNOWN INDICATION
     Dosage: UNK
     Dates: start: 20030107, end: 2004
  2. SIFROL [Suspect]
     Active Substance: PRAMIPEXOLE
     Dosage: 0.72 ML
     Dates: start: 200904, end: 20120420
  3. LYSANXIA [Concomitant]
     Active Substance: PRAZEPAM
     Indication: PRODUCT USED FOR UNKNOWN INDICATION
     Dosage: UNK
  4. TRIVASTAL [Suspect]
     Active Substance: PIRIBEDIL
     Indication: RESTLESS LEGS SYNDROME
     Dosage: 50 MG
     Dates: start: 200407, end: 200412
  5. REQUIP [Suspect]
     Active Substance: ROPINIROLE HYDROCHLORIDE
     Indication: RESTLESS LEGS SYNDROME
     Dosage: UNK
     Dates: start: 2004
  6. SIFROL [Suspect]
     Active Substance: PRAMIPEXOLE
     Indication: RESTLESS LEGS SYNDROME
     Dosage: 0.18 MG, TID
     Dates: start: 20081117, end: 200904
  7. PANTOPRAZOLE [Concomitant]
     Active Substance: PANTOPRAZOLE
     Indication: PRODUCT USED FOR UNKNOWN INDICATION
     Dosage: UNK
  8. ADARTREL [Suspect]
     Active Substance: ROPINIROLE
     Indication: PRODUCT USED FOR UNKNOWN INDICATION
     Dosage: 2 MG, QD
     Dates: start: 20060526
  9. ADARTREL [Suspect]
     Active Substance: ROPINIROLE
     Dosage: 4 MG, QD
     Dates: end: 200811
  10. SERESTA [Suspect]
     Active Substance: OXAZEPAM
     Indication: PRODUCT USED FOR UNKNOWN INDICATION
     Dosage: UNK
     Dates: start: 2011, end: 201304
  11. EFFEXOR [Suspect]
     Active Substance: VENLAFAXINE HYDROCHLORIDE
     Indication: PRODUCT USED FOR UNKNOWN INDICATION
     Dosage: UNKSTRENGTH: 75
     Dates: start: 2011
  12. REQUIP [Suspect]
     Active Substance: ROPINIROLE HYDROCHLORIDE
     Dosage: 0.5 MG
     Dates: start: 20050502, end: 200606
  13. REQUIP [Suspect]
     Active Substance: ROPINIROLE HYDROCHLORIDE
     Dosage: 3 MG
     Dates: start: 2006
  14. DEPAKOTE [Suspect]
     Active Substance: DIVALPROEX SODIUM
     Indication: BIPOLAR DISORDER
     Dosage: 1500 MG, QD
     Dates: start: 200301, end: 201210

REACTIONS (46)
  - Schizoaffective disorder [Unknown]
  - Bipolar I disorder [Unknown]
  - Mental disorder [Unknown]
  - Tremor [Unknown]
  - Crying [Unknown]
  - Insomnia [Unknown]
  - Fatigue [Unknown]
  - Confusional state [Unknown]
  - Memory impairment [Unknown]
  - Drug ineffective [Unknown]
  - Bipolar disorder [Not Recovered/Not Resolved]
  - Anxiety [Unknown]
  - Mental impairment [Unknown]
  - General physical health deterioration [Not Recovered/Not Resolved]
  - Poor quality sleep [Unknown]
  - Loss of employment [Unknown]
  - Hypertension [Unknown]
  - Procrastination [Not Recovered/Not Resolved]
  - Condition aggravated [Recovered/Resolved]
  - Disorientation [Unknown]
  - Loss of personal independence in daily activities [Unknown]
  - Speech disorder [Unknown]
  - Gambling [Recovered/Resolved]
  - Dementia [Unknown]
  - Dementia Alzheimer^s type [Unknown]
  - Psychiatric symptom [Unknown]
  - Abdominal distension [Unknown]
  - Overweight [Unknown]
  - Pain [Unknown]
  - Incorrect dose administered [Unknown]
  - Restless legs syndrome [Recovered/Resolved]
  - Sleep apnoea syndrome [Unknown]
  - Abnormal behaviour [Unknown]
  - Polyneuropathy [Not Recovered/Not Resolved]
  - Cognitive disorder [Not Recovered/Not Resolved]
  - Libido increased [Unknown]
  - Hepatic steatosis [Unknown]
  - Logorrhoea [Unknown]
  - Hyperhidrosis [Unknown]
  - Personal relationship issue [Unknown]
  - Overdose [Recovered/Resolved]
  - Apathy [Not Recovered/Not Resolved]
  - Emotional disorder [Not Recovered/Not Resolved]
  - Agitation [Unknown]
  - Nausea [Unknown]
  - Therapeutic product effect incomplete [Unknown]

NARRATIVE: CASE EVENT DATE: 201501
